FAERS Safety Report 11725875 (Version 1)
Quarter: 2015Q4

REPORT INFORMATION
  Report Type: Spontaneous
  Country: US (occurrence: US)
  Receive Date: 20151111
  Receipt Date: 20151111
  Transmission Date: 20160304
  Serious: Yes (Death)
  Sender: FDA-Public Use
  Company Number: US-ROCHE-1660104

PATIENT
  Sex: Male

DRUGS (3)
  1. LEVOFLOXACIN. [Concomitant]
     Active Substance: LEVOFLOXACIN
  2. ZELBORAF [Suspect]
     Active Substance: VEMURAFENIB
     Indication: PRODUCT USED FOR UNKNOWN INDICATION
     Route: 065
  3. ACETAMINOPHEN. [Concomitant]
     Active Substance: ACETAMINOPHEN
     Indication: POLYCYTHAEMIA VERA

REACTIONS (1)
  - Death [Fatal]
